FAERS Safety Report 7925736-7 (Version None)
Quarter: 2011Q4

REPORT INFORMATION
  Report Type: 
  Country: None (occurrence: None)
  Receive Date: 20111118
  Receipt Date: 20110411
  Transmission Date: 20120403
  Serious: No
  Sender: FDA-Public Use
  Company Number: US-AMGEN-USASP2011019142

PATIENT
  Age: 54 Year
  Sex: Female
  Weight: 61.224 kg

DRUGS (10)
  1. AMITRIPTYLINE HCL [Concomitant]
     Dosage: 10 MG, UNK
  2. METHOTREXATE [Concomitant]
     Dosage: 2.5 MG, UNK
  3. ENBREL [Suspect]
     Indication: PRODUCT USED FOR UNKNOWN INDICATION
     Dosage: 50 MG, QWK
     Route: 058
  4. BUSPIRONE [Concomitant]
     Dosage: 5 MG, UNK
  5. SIMVASTATIN [Concomitant]
     Dosage: 10 MG, UNK
  6. FOLIC ACID [Concomitant]
     Dosage: 1 MG, UNK
  7. FOSAMAX [Concomitant]
     Dosage: 70 MG, UNK
  8. LORAZEPAM [Concomitant]
     Dosage: 0.5 MG, UNK
  9. CALCIUM D                          /00944201/ [Concomitant]
  10. NEXIUM [Concomitant]
     Dosage: 40 MG, UNK

REACTIONS (4)
  - PULMONARY CONGESTION [None]
  - COUGH [None]
  - BRONCHITIS [None]
  - PYREXIA [None]
